FAERS Safety Report 7906883-2 (Version None)
Quarter: 2011Q4

REPORT INFORMATION
  Report Type: 
  Country: None (occurrence: None)
  Receive Date: 20111110
  Receipt Date: 20111103
  Transmission Date: 20120403
  Serious: Yes (Hospitalization)
  Sender: FDA-Public Use
  Company Number: US-US-EMD SERONO, INC.-7093975

PATIENT
  Sex: Male
  Weight: 70 kg

DRUGS (1)
  1. REBIF [Suspect]
     Indication: PRODUCT USED FOR UNKNOWN INDICATION
     Route: 058
     Dates: end: 20110101

REACTIONS (3)
  - KNEE OPERATION [None]
  - INJECTION SITE PAIN [None]
  - DECUBITUS ULCER [None]
